FAERS Safety Report 7209851-1 (Version None)
Quarter: 2011Q1

REPORT INFORMATION
  Report Type: 
  Country: None (occurrence: None)
  Receive Date: 20110104
  Receipt Date: 20101220
  Transmission Date: 20110831
  Serious: Yes (Other)
  Sender: FDA-Public Use
  Company Number: US-BAYER-2010-006649

PATIENT
  Sex: Female
  Weight: 70.748 kg

DRUGS (3)
  1. OXYBUTYNIN CHLORIDE [Suspect]
     Dosage: UNK
     Route: 061
  2. CIPRO [Suspect]
     Indication: URINARY TRACT INFECTION
     Dosage: UNK
     Route: 048
     Dates: start: 20090901, end: 20090901
  3. OXYBUTYNIN CHLORIDE [Suspect]
     Indication: HYPERTONIC BLADDER
     Dosage: NK %, UNK
     Route: 061
     Dates: start: 20090801, end: 20091019

REACTIONS (5)
  - BLOOD ALKALINE PHOSPHATASE INCREASED [None]
  - CHEST DISCOMFORT [None]
  - ALANINE AMINOTRANSFERASE INCREASED [None]
  - CHEST PAIN [None]
  - ASPARTATE AMINOTRANSFERASE INCREASED [None]
